FAERS Safety Report 22049010 (Version 3)
Quarter: 2023Q2

REPORT INFORMATION
  Report Type: Report from Study
  Country: DE (occurrence: DE)
  Receive Date: 20230301
  Receipt Date: 20230531
  Transmission Date: 20230722
  Serious: Yes (Other)
  Sender: FDA-Public Use
  Company Number: DE-002147023-NVSC2020DE309805

PATIENT
  Sex: Female
  Weight: 68 kg

DRUGS (22)
  1. ANASTROZOLE [Suspect]
     Active Substance: ANASTROZOLE
     Indication: Breast cancer
     Dosage: 2.5 MILLIGRAM, QD
     Route: 048
     Dates: start: 20200922
  2. ANASTROZOLE [Suspect]
     Active Substance: ANASTROZOLE
     Indication: Hormone receptor positive HER2 negative breast cancer
  3. KISQALI [Suspect]
     Active Substance: RIBOCICLIB
     Indication: Breast cancer
     Dosage: 600MG 21 DAYS INTAKE, 7 DAYS PAUSE
     Route: 048
     Dates: start: 20201016, end: 20201027
  4. KISQALI [Suspect]
     Active Substance: RIBOCICLIB
     Indication: Hormone receptor positive HER2 negative breast cancer
     Dosage: 600MG 21 DAYS INTAKE, 7 DAYS PAUSE
     Route: 048
     Dates: start: 20201113, end: 20201124
  5. KISQALI [Suspect]
     Active Substance: RIBOCICLIB
     Dosage: 400MG 21 DAYS INTAKE, 7 DAYS PAUSE
     Route: 048
     Dates: start: 20201210, end: 20210106
  6. KISQALI [Suspect]
     Active Substance: RIBOCICLIB
     Dosage: 400MG 21 DAYS INTAKE, 7 DAYS PAUSE
     Route: 048
     Dates: start: 20210121, end: 20210324
  7. KISQALI [Suspect]
     Active Substance: RIBOCICLIB
     Dosage: 400MG 21 DAYS INTAKE, 7 DAYS PAUSE
     Route: 048
     Dates: start: 20210408, end: 20210630
  8. KISQALI [Suspect]
     Active Substance: RIBOCICLIB
     Dosage: 400MG 21 DAYS INTAKE, 7 DAYS PAUSE
     Route: 048
     Dates: start: 20210708, end: 20210804
  9. KISQALI [Suspect]
     Active Substance: RIBOCICLIB
     Dosage: 400MG 21 DAYS INTAKE, 7 DAYS PAUSE
     Route: 048
     Dates: start: 20210812, end: 20220126
  10. KISQALI [Suspect]
     Active Substance: RIBOCICLIB
     Dosage: 400MG 21 DAYS INTAKE, 7 DAYS PAUSE
     Route: 048
     Dates: start: 20220203, end: 20220427
  11. KISQALI [Suspect]
     Active Substance: RIBOCICLIB
     Dosage: 400MG(21 DAYS INTAKE 7 DAYS PAUSE)
     Route: 048
     Dates: start: 20220505, end: 20220727
  12. KISQALI [Suspect]
     Active Substance: RIBOCICLIB
     Dosage: 400MG 21 DAYS INTAKE, 7 DAYS PAUSE
     Route: 065
     Dates: start: 20220804, end: 20220831
  13. KISQALI [Suspect]
     Active Substance: RIBOCICLIB
     Dosage: 400MG 21 DAYS INTAKE,7 DAYS PAUSE)
     Route: 048
     Dates: start: 20220908, end: 20221005
  14. KISQALI [Suspect]
     Active Substance: RIBOCICLIB
     Dosage: 400MG 21 DAYS INTAKE, 7 DAYS PAUSE
     Route: 048
     Dates: start: 20221013, end: 20230301
  15. KISQALI [Suspect]
     Active Substance: RIBOCICLIB
     Dosage: 400MG 21 DAYS INTAKE, 7 DAYS PAUSE
     Route: 048
     Dates: start: 20230330
  16. CANDESARTAN [Concomitant]
     Active Substance: CANDESARTAN
     Indication: Hypertension
     Dosage: UNK
     Route: 048
     Dates: start: 2011
  17. ALLOPURINOL [Concomitant]
     Active Substance: ALLOPURINOL
     Indication: Gout
     Dosage: UNK
     Route: 048
     Dates: start: 2013
  18. CANDESARTAN CILEXETIL\HYDROCHLOROTHIAZIDE [Concomitant]
     Active Substance: CANDESARTAN CILEXETIL\HYDROCHLOROTHIAZIDE
     Indication: Hypertension
     Dosage: UNK (8+12)
     Route: 048
     Dates: start: 20210420
  19. ASPIRIN [Concomitant]
     Active Substance: ASPIRIN
     Indication: Basal ganglia infarction
     Dosage: UNK
     Route: 048
     Dates: start: 202207
  20. LEVOTHYROXINE [Concomitant]
     Active Substance: LEVOTHYROXINE
     Indication: Hypothyroidism
     Dosage: UNK
     Route: 048
     Dates: start: 2016
  21. ETORICOXIB [Concomitant]
     Active Substance: ETORICOXIB
     Indication: Gout
     Dosage: UNK
     Route: 048
     Dates: start: 2018
  22. ETORICOXIB [Concomitant]
     Active Substance: ETORICOXIB
     Indication: Pain

REACTIONS (5)
  - Renal impairment [Not Recovered/Not Resolved]
  - Nail discolouration [Not Recovered/Not Resolved]
  - Blood creatinine increased [Not Recovered/Not Resolved]
  - Anaemia [Not Recovered/Not Resolved]
  - Vomiting [Recovered/Resolved]

NARRATIVE: CASE EVENT DATE: 20201028
